FAERS Safety Report 13497551 (Version 3)
Quarter: 2017Q2

REPORT INFORMATION
  Report Type: Report from Study
  Country: None (occurrence: CH)
  Receive Date: 20170428
  Receipt Date: 20170623
  Transmission Date: 20170830
  Serious: Yes (Hospitalization)
  Sender: FDA-Public Use
  Company Number: CH-ABBVIE-17P-151-1855292-00

PATIENT
  Sex: Female

DRUGS (6)
  1. DUODOPA [Suspect]
     Active Substance: CARBIDOPA\LEVODOPA
     Dosage: 24 HOUR THERAPY, MD: 6.0ML, CR DAY: 2.3ML/H, CR NIGHT: 1.0ML/H, ED: 1.0ML
     Route: 050
     Dates: start: 20170123
  2. DUODOPA [Suspect]
     Active Substance: CARBIDOPA\LEVODOPA
     Dosage: 16 HR THERAPY MD: 6.0 ML, CR DAY: 3.9 ML/H, ED: 0.5ML, LOCK TIME: 1H
     Route: 050
  3. TEMESTA [Concomitant]
     Active Substance: LORAZEPAM
     Indication: PRODUCT USED FOR UNKNOWN INDICATION
     Dosage: AT NIGHT
     Route: 048
  4. TASMAR [Concomitant]
     Active Substance: TOLCAPONE
     Indication: PRODUCT USED FOR UNKNOWN INDICATION
     Route: 048
  5. DUODOPA [Suspect]
     Active Substance: CARBIDOPA\LEVODOPA
     Indication: PARKINSON^S DISEASE
     Dosage: 1 CASSETTE FOR TWO DAYS
     Route: 050
     Dates: start: 20100512, end: 20170123
  6. DUODOPA [Suspect]
     Active Substance: CARBIDOPA\LEVODOPA
     Dosage: MD: 6.0 ML, CR DAY: 2.3 ML/H, ED: 6.ML, CR NIGHT:1.0ML/H. 1 CASSETTE PER 24HOURS
     Route: 050

REACTIONS (7)
  - Gait disturbance [Not Recovered/Not Resolved]
  - Hyperkinesia [Not Recovered/Not Resolved]
  - Stoma site reaction [Recovered/Resolved]
  - Akinesia [Recovered/Resolved]
  - General physical health deterioration [Recovering/Resolving]
  - Dyskinesia [Unknown]
  - Stoma site infection [Recovering/Resolving]
